FAERS Safety Report 6168488-6 (Version None)
Quarter: 2009Q2

REPORT INFORMATION
  Report Type: 
  Country: None (occurrence: None)
  Receive Date: 20090427
  Receipt Date: 20090417
  Transmission Date: 20091009
  Serious: Yes (Hospitalization)
  Sender: FDA-Public Use
  Company Number: A0780216A

PATIENT
  Age: 61 Year
  Sex: Male
  Weight: 94.1 kg

DRUGS (9)
  1. AVANDIA [Suspect]
     Dosage: 4MG PER DAY
     Dates: start: 20030708, end: 20070601
  2. PRANDIN [Concomitant]
     Dates: start: 20041201
  3. METOPROLOL SUCCINATE [Concomitant]
     Dates: start: 20040101
  4. ZOCOR [Concomitant]
     Dates: start: 20020101
  5. XALATAN [Concomitant]
  6. BRIMONIDINE TARTRATE [Concomitant]
  7. QUINAPRIL [Concomitant]
     Indication: HYPERTENSION
  8. PROTONIX [Concomitant]
  9. MICARDIS [Concomitant]
     Indication: HYPERTENSION

REACTIONS (3)
  - CORONARY ARTERY DISEASE [None]
  - MYOCARDIAL INFARCTION [None]
  - PAIN [None]
